FAERS Safety Report 4758626-1 (Version None)
Quarter: 2005Q3

REPORT INFORMATION
  Report Type: 
  Country: None (occurrence: None)
  Receive Date: 20050901
  Receipt Date: 20050822
  Transmission Date: 20060218
  Serious: Yes (Other)
  Sender: FDA-Public Use
  Company Number: US-BRISTOL-MYERS SQUIBB COMPANY-13086293

PATIENT
  Age: 54 Year
  Sex: Female
  Weight: 68 kg

DRUGS (9)
  1. COUMADIN [Suspect]
     Indication: CARDIOLIPIN ANTIBODY
     Route: 048
  2. BENEFIBER [Suspect]
     Indication: CONSTIPATION PROPHYLAXIS
     Dosage: 6 TSP. BID
     Route: 048
     Dates: start: 20040812
  3. PRINIVIL [Concomitant]
  4. ACIPHEX [Concomitant]
  5. PREDNISONE TAB [Concomitant]
  6. IMURAN [Concomitant]
  7. PHENOBARBITAL TAB [Concomitant]
  8. CARTIA XT [Concomitant]
  9. FOSAMAX [Concomitant]

REACTIONS (3)
  - CARDIOLIPIN ANTIBODY [None]
  - HIATUS HERNIA [None]
  - WEIGHT DECREASED [None]
